FAERS Safety Report 21844455 (Version 2)
Quarter: 2023Q1

REPORT INFORMATION
  Report Type: Spontaneous
  Country: US (occurrence: US)
  Receive Date: 20230110
  Receipt Date: 20230206
  Transmission Date: 20230418
  Serious: Yes (Other)
  Sender: FDA-Public Use
  Company Number: US-BAYER-2023A002717

PATIENT
  Age: 18 Year
  Sex: Male

DRUGS (3)
  1. KOVALTRY [Suspect]
     Active Substance: ANTIHEMOPHILIC FACTOR, HUMAN RECOMBINANT
     Dosage: 2000 IU
  2. KOVALTRY [Suspect]
     Active Substance: ANTIHEMOPHILIC FACTOR, HUMAN RECOMBINANT
     Dosage: 4000 IU
  3. KOVALTRY [Suspect]
     Active Substance: ANTIHEMOPHILIC FACTOR, HUMAN RECOMBINANT
     Dosage: 2 DF, ONCE FOR BLEED NOS
     Dates: start: 202301, end: 202301

REACTIONS (2)
  - Oral surgery [None]
  - Haemorrhage [Recovering/Resolving]

NARRATIVE: CASE EVENT DATE: 20230105
